FAERS Safety Report 12879936 (Version 1)
Quarter: 2016Q4

REPORT INFORMATION
  Report Type: Spontaneous
  Country: US (occurrence: US)
  Receive Date: 20161025
  Receipt Date: 20161025
  Transmission Date: 20170207
  Serious: No
  Sender: FDA-Public Use
  Company Number: US-PFIZER INC-2016489525

PATIENT
  Age: 54 Year
  Sex: Female
  Weight: 96.15 kg

DRUGS (6)
  1. TRAMADOL. [Concomitant]
     Active Substance: TRAMADOL
     Dosage: 200 MG, UNK (30/MONTH)
  2. TYLENOL WITH CODEINE [Concomitant]
     Active Substance: ACETAMINOPHEN\CODEINE PHOSPHATE
     Dosage: UNK (60/ MONTH)
  3. FOLIC ACID. [Concomitant]
     Active Substance: FOLIC ACID
     Dosage: 1 MG, UNK (30/MONTH)
  4. ETODOLAC. [Concomitant]
     Active Substance: ETODOLAC
     Dosage: 500 MG, UNK (60/MONTH)
  5. METHOTREXATE SODIUM. [Suspect]
     Active Substance: METHOTREXATE SODIUM
     Indication: RHEUMATOID ARTHRITIS
     Dosage: 2.5 MG, UNK (24/ MONTH)
     Dates: start: 2011
  6. TRAMADOL. [Concomitant]
     Active Substance: TRAMADOL
     Dosage: 100 MG, UNK (15/MONTH)

REACTIONS (8)
  - Fatigue [Unknown]
  - Asthenia [Unknown]
  - Snoring [Unknown]
  - Drug ineffective [Unknown]
  - Contusion [Unknown]
  - Muscle spasms [Unknown]
  - Muscular weakness [Unknown]
  - Alopecia [Unknown]
